FAERS Safety Report 13359794 (Version 1)
Quarter: 2017Q1

REPORT INFORMATION
  Report Type: Spontaneous
  Country: US (occurrence: US)
  Receive Date: 20170322
  Receipt Date: 20170322
  Transmission Date: 20170429
  Serious: No
  Sender: FDA-Public Use
  Company Number: US-LEO PHARMA-300335

PATIENT

DRUGS (1)
  1. PICATO [Suspect]
     Active Substance: INGENOL MEBUTATE
     Indication: PRECANCEROUS SKIN LESION

REACTIONS (5)
  - Drug administration error [Unknown]
  - Application site discolouration [Unknown]
  - Application site swelling [Unknown]
  - Inappropriate schedule of drug administration [Unknown]
  - Application site erythema [Unknown]
